FAERS Safety Report 9432336 (Version 2)
Quarter: 2013Q3

REPORT INFORMATION
  Report Type: Spontaneous
  Country: US (occurrence: US)
  Receive Date: 20130731
  Receipt Date: 20130906
  Transmission Date: 20140515
  Serious: Yes (Hospitalization)
  Sender: FDA-Public Use
  Company Number: US-PFIZER INC-2013222186

PATIENT
  Sex: Female

DRUGS (3)
  1. AVINZA [Suspect]
     Indication: MULTIPLE SCLEROSIS
     Dosage: 60 MG, 2X/DAY
     Route: 048
  2. AVINZA [Suspect]
     Indication: PAIN IN EXTREMITY
  3. AVINZA [Suspect]
     Indication: SPINAL DISORDER

REACTIONS (5)
  - Malaise [Recovered/Resolved]
  - Movement disorder [Recovered/Resolved]
  - Incorrect product storage [Recovered/Resolved]
  - Poor quality drug administered [Unknown]
  - Drug ineffective [Unknown]
